FAERS Safety Report 22806575 (Version 2)
Quarter: 2024Q3

REPORT INFORMATION
  Report Type: Spontaneous
  Country: US (occurrence: US)
  Receive Date: 20230810
  Receipt Date: 20240701
  Transmission Date: 20241017
  Serious: Yes (Life-Threatening, Hospitalization, Other)
  Sender: AUROBINDO
  Company Number: US-AUROBINDO-AUR-APL-2023-051250

PATIENT
  Age: 23 Year
  Sex: Male

DRUGS (1)
  1. CAFFEINE [Suspect]
     Active Substance: CAFFEINE
     Indication: Product used for unknown indication
     Dosage: 24 GRAM
     Route: 048

REACTIONS (7)
  - Suicide attempt [Unknown]
  - Cardiopulmonary failure [Recovering/Resolving]
  - Intentional overdose [Recovering/Resolving]
  - Toxicity to various agents [Recovering/Resolving]
  - Hypotension [Recovering/Resolving]
  - Atrial enlargement [Recovering/Resolving]
  - Sinus tachycardia [Recovering/Resolving]
